FAERS Safety Report 7822626-5 (Version None)
Quarter: 2011Q4

REPORT INFORMATION
  Report Type: 
  Country: None (occurrence: None)
  Receive Date: 20111018
  Receipt Date: 20111014
  Transmission Date: 20120403
  Serious: Yes (Life-Threatening, Hospitalization)
  Sender: FDA-Public Use
  Company Number: US-ASTRAZENECA-2010SE41533

PATIENT
  Age: 65 Year
  Sex: Female

DRUGS (9)
  1. VERAPAMIL [Concomitant]
  2. SYMBICORT [Suspect]
     Indication: ASTHMA
     Dosage: 160/4.5 TWO PUFFS TWICE A DAY
     Route: 055
     Dates: start: 20080101
  3. LASIX [Concomitant]
  4. ALBUTEROL [Concomitant]
     Dosage: PRN
  5. GENERIC CELEXA [Concomitant]
  6. ENALAPRIL MALEATE [Concomitant]
  7. GLUCOPHAGE [Concomitant]
  8. SYMBICORT [Suspect]
     Indication: CHRONIC OBSTRUCTIVE PULMONARY DISEASE
     Dosage: 160/4.5 TWO PUFFS TWICE A DAY
     Route: 055
     Dates: start: 20080101
  9. POTASSIUM [Concomitant]

REACTIONS (6)
  - RESPIRATORY FAILURE [None]
  - DRUG DOSE OMISSION [None]
  - PNEUMONIA [None]
  - CARDIAC FAILURE CONGESTIVE [None]
  - MALAISE [None]
  - DYSPNOEA [None]
